FAERS Safety Report 4755447-0 (Version None)
Quarter: 2005Q3

REPORT INFORMATION
  Report Type: 
  Country: None (occurrence: None)
  Receive Date: 20050829
  Receipt Date: 20050816
  Transmission Date: 20060218
  Serious: Yes (Hospitalization)
  Sender: FDA-Public Use
  Company Number: 2005116148

PATIENT
  Sex: Male

DRUGS (8)
  1. CODRAL COUGH, COLD + FLU DAY + NIGHT (DAY) (PARACETAMOL, PSEUDOEPHEDRI [Suspect]
     Dosage: THREE DOSES, ORAL
     Route: 048
     Dates: start: 20050701, end: 20050701
  2. CODRAL COUGH, COLD + FLU DAY + NIGHT (NIGHT) (PARACETAMOL, DEXTROMETHO [Suspect]
     Dosage: ONE DOSE, ORAL
     Route: 048
     Dates: start: 20050701, end: 20050701
  3. BIMATOPROST (BIMATOPROST) [Concomitant]
  4. LEVOTHYROXINE SODIUM [Concomitant]
  5. DORZOLAMIDE HYDROCHLORIDE (DORZOLAMIDE HYDROCHLORIDE) [Concomitant]
  6. BETAXOLOL HYDROCHLORIDE (BETAXOLOL HYDROCHLORIDE) [Concomitant]
  7. ROXITHROMYCIN (ROXITHROMYCIN) [Concomitant]
  8. AMOXICILLIN [Concomitant]

REACTIONS (3)
  - CEREBROVASCULAR ACCIDENT [None]
  - FALL [None]
  - LOSS OF CONSCIOUSNESS [None]
